FAERS Safety Report 8958537 (Version 1)
Quarter: 2012Q4

REPORT INFORMATION
  Report Type: Spontaneous
  Country: FR (occurrence: None)
  Receive Date: 20121203
  Receipt Date: 20121203
  Transmission Date: 20130627
  Serious: Yes (Hospitalization, Other)
  Sender: FDA-Public Use
  Company Number: 2012MPI00270

PATIENT
  Age: 52 Year
  Sex: Male

DRUGS (12)
  1. BRENTUXIMAB VEDOTIN [Suspect]
     Indication: HODGKIN^S DISEASE REFRACTORY
     Dosage: 1.8 mg/kg,  q21d,  Intravenous
     Route: 042
     Dates: start: 20120228, end: 20120323
  2. BRENTUXIMAB VEDOTIN [Suspect]
     Indication: HODGKIN^S DISEASE REFRACTORY
     Dosage: 1.8 mg/kg,  q21d,  Intravenous
     Route: 042
     Dates: start: 20120323, end: 20120426
  3. BRENTUXIMAB VEDOTIN [Suspect]
     Indication: HODGKIN^S DISEASE REFRACTORY
     Dosage: 1.0 mg/kg,  q21d,  Intravenous
     Route: 042
     Dates: start: 20120426, end: 20120517
  4. BRENTUXIMAB VEDOTIN [Suspect]
     Indication: HODGKIN^S DISEASE REFRACTORY
     Dosage: 1.2 mg/kg,  q21d,  Intravenous
     Route: 042
     Dates: start: 20120626, end: 20120917
  5. KARDEGIC (ACETYLSALICYLATE LYSINE) [Concomitant]
  6. LEVOTHYROX (LEVOTHYROXINE SODIUM) INFUSION [Concomitant]
  7. PREDNISONE (PREDNOSONE ACETATE) [Concomitant]
  8. ACEBUTOLOL (ACEBUTOLOL) [Concomitant]
  9. MITOGUAZONE (MITOGUAZONE) [Concomitant]
  10. IFOSFAMIDE (IFOSFAMIDE) [Concomitant]
  11. VINORELBINE (VINORELBINE DITARTRATE) [Concomitant]
  12. ETOPOSIDE (ETOPOSIDE) [Concomitant]

REACTIONS (11)
  - General physical health deterioration [None]
  - Confusional state [None]
  - Areflexia [None]
  - Bone marrow failure [None]
  - Peripheral sensory neuropathy [None]
  - Condition aggravated [None]
  - Weight decreased [None]
  - Cachexia [None]
  - Gait disturbance [None]
  - Dehydration [None]
  - Anaesthesia [None]
